FAERS Safety Report 8445123-5 (Version None)
Quarter: 2012Q2

REPORT INFORMATION
  Report Type: 
  Country: None (occurrence: None)
  Receive Date: 20120618
  Receipt Date: 20120614
  Transmission Date: 20120825
  Serious: No
  Sender: FDA-Public Use
  Company Number: US-PFIZER INC-2012143755

PATIENT
  Sex: Female
  Weight: 51.701 kg

DRUGS (3)
  1. LYRICA [Suspect]
     Dosage: 150 MG, 2X/DAY
     Dates: start: 20120101
  2. LYRICA [Suspect]
     Dosage: 100 MG, 2X/DAY
     Dates: start: 20120101
  3. LYRICA [Suspect]
     Indication: FIBROMYALGIA
     Dosage: 50 MG, 2X/DAY
     Route: 048
     Dates: start: 20120201

REACTIONS (6)
  - MUSCLE SPASMS [None]
  - VISUAL ACUITY REDUCED [None]
  - PAIN [None]
  - VISION BLURRED [None]
  - READING DISORDER [None]
  - MUSCULOSKELETAL STIFFNESS [None]
